FAERS Safety Report 9457228 (Version 2)
Quarter: 2013Q4

REPORT INFORMATION
  Report Type: Spontaneous
  Country: FR (occurrence: FR)
  Receive Date: 20130814
  Receipt Date: 20131022
  Transmission Date: 20140711
  Serious: Yes (Other)
  Sender: FDA-Public Use
  Company Number: FR-BRISTOL-MYERS SQUIBB COMPANY-19176700

PATIENT
  Age: 64 Year
  Sex: Male

DRUGS (3)
  1. ERBITUX SOLN FOR INF [Suspect]
     Indication: OROPHARYNGEAL CANCER
     Dosage: 3 TIMES IN CYCLICAL.?D1, D8 AND D15.?28MAY13-500MG/M2 EVERY 15D
     Route: 042
     Dates: start: 20130225
  2. CISPLATIN [Suspect]
     Indication: OROPHARYNGEAL CANCER
     Dosage: D1
     Route: 042
     Dates: start: 20130225, end: 20130524
  3. 5-FLUOROURACIL [Suspect]
     Indication: OROPHARYNGEAL CANCER
     Dosage: D1, D2, D3, D4
     Route: 042
     Dates: start: 20130225, end: 20130502

REACTIONS (1)
  - Visual acuity reduced [Not Recovered/Not Resolved]
